FAERS Safety Report 6532098-9 (Version None)
Quarter: 2010Q1

REPORT INFORMATION
  Report Type: 
  Country: None (occurrence: None)
  Receive Date: 20100107
  Receipt Date: 20100107
  Transmission Date: 20100710
  Serious: Yes (Other)
  Sender: FDA-Public Use
  Company Number: None

PATIENT
  Age: 10 Year
  Sex: Male
  Weight: 34.927 kg

DRUGS (1)
  1. SINGULAIR [Suspect]
     Indication: MULTIPLE ALLERGIES
     Dates: start: 20030101, end: 20091115

REACTIONS (8)
  - AGGRESSION [None]
  - AGITATION [None]
  - ANXIETY [None]
  - FRUSTRATION [None]
  - POOR QUALITY SLEEP [None]
  - SELF ESTEEM DECREASED [None]
  - SELF INJURIOUS BEHAVIOUR [None]
  - WHEEZING [None]
